FAERS Safety Report 16224812 (Version 1)
Quarter: 2019Q2

REPORT INFORMATION
  Report Type: Spontaneous
  Country: GB (occurrence: GB)
  Receive Date: 20190422
  Receipt Date: 20190422
  Transmission Date: 20190711
  Serious: Yes (Hospitalization)
  Sender: FDA-Public Use
  Company Number: GB-MYLANLABS-2019M1036936

PATIENT
  Age: 71 Year
  Sex: Male

DRUGS (9)
  1. ACETYLSALICYLIC ACID [Concomitant]
     Active Substance: ASPIRIN
     Dosage: 75 MILLIGRAM
  2. RAMIPRIL. [Concomitant]
     Active Substance: RAMIPRIL
     Dosage: 5 MILLIGRAM
  3. BISOPROLOL [Suspect]
     Active Substance: BISOPROLOL
     Dosage: 5 MILLIGRAM, QD
     Route: 048
     Dates: start: 20181019, end: 20181023
  4. BISOPROLOL [Suspect]
     Active Substance: BISOPROLOL
     Indication: PRODUCT USED FOR UNKNOWN INDICATION
     Dosage: BISOPROLOL INCREASED LAST ADMISION FROM 2.5MG TO 5MG
     Dates: end: 20181018
  5. RABEPRAZOLE [Concomitant]
     Active Substance: RABEPRAZOLE
     Dosage: 10 MILLIGRAM
  6. GLYCERYL TRINITRATE [Concomitant]
     Active Substance: NITROGLYCERIN
     Dosage: UNK
     Route: 060
  7. ATORVASTATIN [Concomitant]
     Active Substance: ATORVASTATIN
     Dosage: 40 MILLIGRAM
  8. RAMIPRIL. [Concomitant]
     Active Substance: RAMIPRIL
     Dosage: 2.5 MILLIGRAM
  9. RIVAROXABAN [Concomitant]
     Active Substance: RIVAROXABAN
     Dosage: 20 MILLIGRAM

REACTIONS (4)
  - Dizziness [Unknown]
  - Chest pain [Unknown]
  - Exercise tolerance decreased [Recovered/Resolved]
  - Lethargy [Unknown]

NARRATIVE: CASE EVENT DATE: 201810
